FAERS Safety Report 20589988 (Version 1)
Quarter: 2022Q1

REPORT INFORMATION
  Report Type: Report from Study
  Country: US (occurrence: US)
  Receive Date: 20220314
  Receipt Date: 20220314
  Transmission Date: 20220423
  Serious: Yes (Other)
  Sender: FDA-Public Use
  Company Number: US-GLAXOSMITHKLINE-US2020262143

PATIENT
  Age: 64 Year
  Sex: Female

DRUGS (2)
  1. BELANTAMAB MAFODOTIN [Suspect]
     Active Substance: BELANTAMAB MAFODOTIN
     Indication: Product used for unknown indication
     Dosage: UNK
  2. ZOMETA [Suspect]
     Active Substance: ZOLEDRONIC ACID
     Indication: Product used for unknown indication
     Dosage: UNK

REACTIONS (14)
  - Plasma cell myeloma [Unknown]
  - Diabetes mellitus [Unknown]
  - Cerebrovascular accident [Unknown]
  - Dry eye [Unknown]
  - Visual impairment [Unknown]
  - Eye irritation [Unknown]
  - Fall [Unknown]
  - Cataract diabetic [Unknown]
  - Vital dye staining cornea present [Unknown]
  - Dermatochalasis [Unknown]
  - Hypertension [Unknown]
  - Hypercholesterolaemia [Unknown]
  - Arterial tortuosity syndrome [Unknown]
  - Injury [Unknown]

NARRATIVE: CASE EVENT DATE: 20200501
